FAERS Safety Report 13753536 (Version 1)
Quarter: 2017Q3

REPORT INFORMATION
  Report Type: Spontaneous
  Country: JP (occurrence: JP)
  Receive Date: 20170714
  Receipt Date: 20170714
  Transmission Date: 20171127
  Serious: Yes (Other)
  Sender: FDA-Public Use
  Company Number: JP-VALIDUS PHARMACEUTICALS LLC-JP-2017VAL001044

PATIENT
  Age: 63 Year
  Sex: Female

DRUGS (3)
  1. AZOSEMIDE [Suspect]
     Active Substance: AZOSEMIDE
     Indication: OEDEMA PERIPHERAL
     Dosage: UNK
     Route: 048
  2. FUROSEMIDE. [Suspect]
     Active Substance: FUROSEMIDE
     Indication: OEDEMA PERIPHERAL
     Dosage: UNK
     Route: 048
  3. SPIRONOLACTONE. [Suspect]
     Active Substance: SPIRONOLACTONE
     Indication: OEDEMA PERIPHERAL
     Dosage: UNK
     Route: 048

REACTIONS (4)
  - Muscular weakness [Recovering/Resolving]
  - Hyperreflexia [Unknown]
  - Dropped head syndrome [Recovering/Resolving]
  - Myopathy [Unknown]

NARRATIVE: CASE EVENT DATE: 2016
